FAERS Safety Report 5445259-7 (Version None)
Quarter: 2007Q3

REPORT INFORMATION
  Report Type: 
  Country: None (occurrence: None)
  Receive Date: 20070906
  Receipt Date: 20070828
  Transmission Date: 20080115
  Serious: Yes (Other)
  Sender: FDA-Public Use
  Company Number: US-PFIZER INC-2007072553

PATIENT
  Sex: Female
  Weight: 52.2 kg

DRUGS (5)
  1. CHANTIX [Suspect]
     Indication: SMOKING CESSATION THERAPY
  2. TOPROL-XL [Concomitant]
     Indication: HYPERTENSION
  3. HYDROCHLOROTHIAZIDE [Concomitant]
  4. LIBRIUM [Concomitant]
  5. VITAMINS [Concomitant]

REACTIONS (3)
  - BLOOD SODIUM DECREASED [None]
  - NAUSEA [None]
  - SOMNOLENCE [None]
